FAERS Safety Report 10296959 (Version 1)
Quarter: 2014Q3

REPORT INFORMATION
  Report Type: Spontaneous
  Country: CN (occurrence: CN)
  Receive Date: 20140711
  Receipt Date: 20140711
  Transmission Date: 20150326
  Serious: Yes (Death)
  Sender: FDA-Public Use
  Company Number: CN-SA-2014SA089566

PATIENT
  Age: 24 Year
  Sex: Male
  Weight: 34 kg

DRUGS (1)
  1. CEREZYME [Suspect]
     Active Substance: IMIGLUCERASE
     Indication: GAUCHER^S DISEASE
     Dosage: 3 VIALS
     Route: 042
     Dates: start: 200909, end: 20140530

REACTIONS (1)
  - Road traffic accident [Fatal]

NARRATIVE: CASE EVENT DATE: 20140610
